FAERS Safety Report 6259293-0 (Version None)
Quarter: 2009Q3

REPORT INFORMATION
  Report Type: 
  Country: None (occurrence: None)
  Receive Date: 20090707
  Receipt Date: 20090630
  Transmission Date: 20100115
  Serious: Yes (Hospitalization)
  Sender: FDA-Public Use
  Company Number: PHHY2009MX26593

PATIENT
  Sex: Female

DRUGS (2)
  1. TRILEPTAL [Suspect]
     Indication: EPILEPSY
     Dosage: 4.5 TABLETS (300MG) PER DAY
     Route: 048
     Dates: start: 20060901, end: 20090629
  2. TRILEPTAL [Suspect]
     Dosage: 4 TABLETS (300MG) PER DAY
     Route: 048
     Dates: start: 20090629

REACTIONS (1)
  - BRAIN OPERATION [None]
